FAERS Safety Report 5233034-8 (Version None)
Quarter: 2007Q1

REPORT INFORMATION
  Report Type: 
  Country: None (occurrence: None)
  Receive Date: 20070207
  Receipt Date: 20070131
  Transmission Date: 20070707
  Serious: Yes (Other)
  Sender: FDA-Public Use
  Company Number: SE-PFIZER INC-2006154926

PATIENT
  Age: 19 Year
  Sex: Female

DRUGS (2)
  1. SERTRALINE [Suspect]
     Indication: PANIC REACTION
     Route: 048
  2. SERTRALINE [Suspect]
     Indication: ANXIETY

REACTIONS (2)
  - CARDIAC ARREST [None]
  - SYNCOPE [None]
